FAERS Safety Report 8258348-9 (Version None)
Quarter: 2012Q2

REPORT INFORMATION
  Report Type: 
  Country: None (occurrence: None)
  Receive Date: 20120404
  Receipt Date: 20120327
  Transmission Date: 20120825
  Serious: Yes (Hospitalization)
  Sender: FDA-Public Use
  Company Number: JP-SANOFI-AVENTIS-2012SA022808

PATIENT
  Age: 51 Year
  Sex: Male

DRUGS (9)
  1. ASPIRIN [Concomitant]
     Indication: ANGINA PECTORIS
     Route: 048
     Dates: start: 20120126, end: 20120221
  2. CONIEL [Concomitant]
     Indication: HYPERTENSION
     Route: 048
     Dates: start: 20120126, end: 20120221
  3. EPADEL [Concomitant]
     Indication: ANGINA PECTORIS
     Route: 048
     Dates: start: 20120126, end: 20120221
  4. LANSOPRAZOLE [Suspect]
     Indication: PROPHYLAXIS
     Route: 048
     Dates: start: 20120126, end: 20120221
  5. LIPITOR [Concomitant]
     Route: 048
     Dates: start: 20120112, end: 20120221
  6. URSO 250 [Concomitant]
     Route: 048
     Dates: start: 20110908, end: 20120221
  7. ISOSORBIDE MONONITRATE [Concomitant]
     Indication: ANGINA PECTORIS
     Route: 048
     Dates: start: 20120126
  8. PLAVIX [Suspect]
     Indication: ANGINA PECTORIS
     Route: 048
     Dates: start: 20120126, end: 20120221
  9. ZETIA [Suspect]
     Route: 048
     Dates: start: 20120221, end: 20120221

REACTIONS (1)
  - EOSINOPHILIC COLITIS [None]
